FAERS Safety Report 16915212 (Version 1)
Quarter: 2019Q4

REPORT INFORMATION
  Report Type: Spontaneous
  Country: US (occurrence: US)
  Receive Date: 20191012
  Receipt Date: 20191012
  Transmission Date: 20200122
  Serious: No
  Sender: FDA-Public Use
  Company Number: None

PATIENT
  Age: 57 Year
  Sex: Female
  Weight: 64.35 kg

DRUGS (7)
  1. PROBIOTIC [Concomitant]
     Active Substance: PROBIOTICS NOS
  2. B2 [Concomitant]
  3. EMGALITY [Suspect]
     Active Substance: GALCANEZUMAB-GNLM
     Indication: MIGRAINE PROPHYLAXIS
     Dosage: ?          QUANTITY:1 PROFILES SYRINGE;OTHER FREQUENCY:ONCE MONTHLY;OTHER ROUTE:INJECTED INTO THIGH?
  4. MAGNESIUM [Concomitant]
     Active Substance: MAGNESIUM
  5. EXTRADIOL PATCH [Concomitant]
  6. EFFEXOR [Concomitant]
     Active Substance: VENLAFAXINE HYDROCHLORIDE
  7. PANTOPRAZOL [Concomitant]
     Active Substance: PANTOPRAZOLE SODIUM

REACTIONS (2)
  - Weight increased [None]
  - Hunger [None]

NARRATIVE: CASE EVENT DATE: 20190915
